FAERS Safety Report 7964311-5 (Version None)
Quarter: 2011Q4

REPORT INFORMATION
  Report Type: 
  Country: None (occurrence: None)
  Receive Date: 20111208
  Receipt Date: 20111205
  Transmission Date: 20120403
  Serious: Yes (Death, Other)
  Sender: FDA-Public Use
  Company Number: DE-ASTELLAS-2011EU007764

PATIENT
  Sex: Female

DRUGS (1)
  1. MICAFUNGIN INJECTION [Suspect]
     Indication: PROPHYLAXIS
     Dosage: 50 G, UNKNOWN/D
     Route: 042
     Dates: start: 20111026, end: 20111101

REACTIONS (2)
  - SEPSIS [None]
  - NEUTROPENIA [None]
